FAERS Safety Report 15036482 (Version 1)
Quarter: 2018Q2

REPORT INFORMATION
  Report Type: Spontaneous
  Country: DE (occurrence: DE)
  Receive Date: 20180620
  Receipt Date: 20180620
  Transmission Date: 20180711
  Serious: Yes (Other)
  Sender: FDA-Public Use
  Company Number: DE-BAYER-2018-115522

PATIENT
  Age: 57 Year
  Sex: Male
  Weight: 145 kg

DRUGS (3)
  1. XIPAMID [Suspect]
     Active Substance: XIPAMIDE
     Indication: OEDEMA DUE TO CARDIAC DISEASE
     Route: 048
  2. NAPROXEN-NATRIUM [Suspect]
     Active Substance: NAPROXEN SODIUM
     Dosage: PRN SINCE YEARS
     Route: 048
  3. ENTRESTO [Suspect]
     Active Substance: SACUBITRIL\VALSARTAN
     Indication: CARDIAC FAILURE
     Dosage: 2 DF, QD
     Route: 048
     Dates: start: 20180322, end: 20180404

REACTIONS (1)
  - Acute kidney injury [Recovered/Resolved]

NARRATIVE: CASE EVENT DATE: 20180330
